FAERS Safety Report 5841901-7 (Version None)
Quarter: 2008Q3

REPORT INFORMATION
  Report Type: 
  Country: None (occurrence: None)
  Receive Date: 20080812
  Receipt Date: 20080804
  Transmission Date: 20090109
  Serious: Yes (Death, Other)
  Sender: FDA-Public Use
  Company Number: GB-BRISTOL-MYERS SQUIBB COMPANY-14088884

PATIENT
  Age: 45 Year
  Sex: Female

DRUGS (17)
  1. CYCLOPHOSPHAMIDE [Suspect]
     Indication: SYSTEMIC LUPUS ERYTHEMATOSUS
     Route: 048
     Dates: start: 19920101
  2. AZATHIOPRINE [Suspect]
     Indication: SYSTEMIC LUPUS ERYTHEMATOSUS
  3. MABTHERA [Suspect]
     Indication: SYSTEMIC LUPUS ERYTHEMATOSUS
     Route: 065
     Dates: start: 20020801, end: 20051101
  4. PREDNISOLONE [Suspect]
     Indication: SYSTEMIC LUPUS ERYTHEMATOSUS
     Dosage: ALSO INITIATED FROM JUN 1982-UNKNOWN.
     Route: 065
     Dates: start: 20020615, end: 20030615
  5. CORTICOSTEROID [Suspect]
     Indication: SYSTEMIC LUPUS ERYTHEMATOSUS
     Route: 065
  6. FOLIC ACID [Concomitant]
  7. AMLODIPINE [Concomitant]
     Dosage: 5MG EVERY DAY.
     Dates: start: 20020615
  8. CALCICHEW D3 [Concomitant]
     Dosage: 2 DOSAGE FORM= 2DOSES EVERY DAY.
     Dates: start: 20030615
  9. CLARITIN [Concomitant]
     Indication: HYPERSENSITIVITY
     Dosage: 1 DOSAGE FORM=1 DOSE EVERY DAY.
     Dates: start: 20040615
  10. HYDROXYCHLOROQUINE SULFATE [Concomitant]
     Dosage: PREVIOUSLY: 15-JUN-1982 TO 15-JUN-1992
     Dates: start: 20020615
  11. IMMUNE GLOBULIN (HUMAN) [Concomitant]
  12. NUVELLE [Concomitant]
     Dosage: 1 DOSAGE FORM= 1 DOSE EVERY DAY.
     Dates: start: 19930615
  13. PROBENECID [Concomitant]
  14. THYROXINE [Concomitant]
     Dates: start: 19900615
  15. ACYCLOVIR [Concomitant]
  16. METHYLPREDNISOLONE [Concomitant]
     Indication: CYANOSIS
     Dates: start: 19990615, end: 20020615
  17. LEVOPROME [Concomitant]

REACTIONS (7)
  - BONE MARROW TOXICITY [None]
  - CYSTITIS HAEMORRHAGIC [None]
  - GRANULOCYTOSIS [None]
  - HERPES ZOSTER [None]
  - PNEUMONIA [None]
  - PROGRESSIVE MULTIFOCAL LEUKOENCEPHALOPATHY [None]
  - RESPIRATORY FAILURE [None]
